FAERS Safety Report 5353688-5 (Version None)
Quarter: 2007Q2

REPORT INFORMATION
  Report Type: 
  Country: None (occurrence: None)
  Receive Date: 20070612
  Receipt Date: 20070529
  Transmission Date: 20071010
  Serious: Yes (Other)
  Sender: FDA-Public Use
  Company Number: US-AMGEN-US226576

PATIENT
  Sex: Male
  Weight: 104.4 kg

DRUGS (10)
  1. ENBREL [Suspect]
     Indication: RHEUMATOID ARTHRITIS
     Route: 058
     Dates: start: 20060911
  2. METHOTREXATE [Concomitant]
     Route: 065
  3. ARAVA [Concomitant]
     Route: 048
  4. NAPROXEN [Concomitant]
     Route: 065
  5. INSULIN [Concomitant]
     Route: 065
  6. METFORMIN HCL [Concomitant]
     Route: 065
  7. GEMFIBROZIL [Concomitant]
     Route: 065
  8. FLOMAX [Concomitant]
     Route: 065
  9. PRILOSEC [Concomitant]
  10. PERCOCET [Concomitant]
     Route: 065

REACTIONS (1)
  - FACIAL PALSY [None]
